FAERS Safety Report 4572100-7 (Version None)
Quarter: 2005Q1

REPORT INFORMATION
  Report Type: 
  Country: None (occurrence: None)
  Receive Date: 20050202
  Receipt Date: 20050114
  Transmission Date: 20050727
  Serious: Yes (Hospitalization, Other)
  Sender: FDA-Public Use
  Company Number: USA050188393

PATIENT
  Sex: Female

DRUGS (2)
  1. HUMALOG [Suspect]
     Dosage: 10 U DAY
  2. LANTUS [Concomitant]

REACTIONS (6)
  - BLOOD GLUCOSE INCREASED [None]
  - KETOACIDOSIS [None]
  - NERVOUSNESS [None]
  - ORAL MUCOSAL DISORDER [None]
  - PHARMACEUTICAL PRODUCT COMPLAINT [None]
  - SCRATCH [None]
